FAERS Safety Report 7436714-9 (Version None)
Quarter: 2011Q2

REPORT INFORMATION
  Report Type: 
  Country: None (occurrence: None)
  Receive Date: 20110426
  Receipt Date: 20110425
  Transmission Date: 20111010
  Serious: No
  Sender: FDA-Public Use
  Company Number: US-TEVA-277962USA

PATIENT
  Sex: Male

DRUGS (3)
  1. INTERFERON BETA NOS [Suspect]
  2. COPAXONE [Suspect]
     Indication: MULTIPLE SCLEROSIS
     Route: 058
  3. BETASERON [Suspect]

REACTIONS (1)
  - DRUG INEFFECTIVE [None]
